FAERS Safety Report 19654928 (Version 1)
Quarter: 2021Q3

REPORT INFORMATION
  Report Type: Spontaneous
  Country: US (occurrence: US)
  Receive Date: 20210802
  Receipt Date: 20210802
  Transmission Date: 20211014
  Serious: Yes (Life-Threatening, Hospitalization)
  Sender: FDA-Public Use
  Company Number: None

PATIENT
  Age: 80 Year
  Sex: Female
  Weight: 66.68 kg

DRUGS (13)
  1. VITAMIN B12 [Concomitant]
     Active Substance: CYANOCOBALAMIN
  2. SIMVASTATIN. [Concomitant]
     Active Substance: SIMVASTATIN
  3. METOPROLOL. [Concomitant]
     Active Substance: METOPROLOL
  4. ST. JOOSEPH LOW DOSE ASPIRIN [Concomitant]
  5. LOSARTAN/HCTZ [Concomitant]
     Active Substance: HYDROCHLOROTHIAZIDE\LOSARTAN
  6. NUTRILITE DOUBLE X SUPPLEMENT [Concomitant]
  7. LATANOPROST OP SOL [Concomitant]
  8. NUTRILITE DIGESTIVE ENZYME [Concomitant]
  9. CREON [Suspect]
     Active Substance: PANCRELIPASE AMYLASE\PANCRELIPASE LIPASE\PANCRELIPASE PROTEASE
     Indication: PANCREATIC DISORDER
     Dosage: ?          OTHER STRENGTH:36000 UNITS;QUANTITY:1 DF DOSAGE FORM; BEFORE EACH MEAL?
     Route: 048
     Dates: start: 20210223, end: 20210521
  10. POTASS CL ER WM [Concomitant]
  11. OMEPRAZOLE. [Concomitant]
     Active Substance: OMEPRAZOLE
  12. D?3 [Concomitant]
     Active Substance: CHOLECALCIFEROL
  13. DORZOL/TIMOL SOL [Concomitant]

REACTIONS (2)
  - Pruritus [None]
  - Rash erythematous [None]

NARRATIVE: CASE EVENT DATE: 20210521
